FAERS Safety Report 23325846 (Version 1)
Quarter: 2023Q4

REPORT INFORMATION
  Report Type: Spontaneous
  Country: US (occurrence: None)
  Receive Date: 20231220
  Receipt Date: 20231220
  Transmission Date: 20240110
  Serious: Yes (Hospitalization)
  Sender: FDA-Public Use
  Company Number: None

PATIENT
  Age: 52 Year
  Sex: Female

DRUGS (1)
  1. BRAFTOVI [Suspect]
     Active Substance: ENCORAFENIB
     Dosage: FREQUENCY : DAILY;?
     Route: 048

REACTIONS (7)
  - Amnesia [None]
  - Diarrhoea [None]
  - Constipation [None]
  - Fatigue [None]
  - Balance disorder [None]
  - Swollen tongue [None]
  - Blood sodium decreased [None]
